FAERS Safety Report 6626633-X (Version None)
Quarter: 2010Q1

REPORT INFORMATION
  Report Type: 
  Country: None (occurrence: None)
  Receive Date: 20100309
  Receipt Date: 20100309
  Transmission Date: 20100710
  Serious: Yes (Hospitalization)
  Sender: FDA-Public Use
  Company Number: None

PATIENT
  Age: 45 Year
  Sex: Female

DRUGS (1)
  1. LYRICA [Suspect]
     Indication: POST HERPETIC NEURALGIA
     Dosage: 75MG-150MG TID PO
     Route: 048
     Dates: start: 20091115, end: 20100104

REACTIONS (5)
  - BLISTER [None]
  - INFECTION [None]
  - OEDEMA PERIPHERAL [None]
  - SECRETION DISCHARGE [None]
  - SKIN EXFOLIATION [None]
